FAERS Safety Report 15800949 (Version 5)
Quarter: 2019Q1

REPORT INFORMATION
  Report Type: Spontaneous
  Country: PT (occurrence: PT)
  Receive Date: 20190109
  Receipt Date: 20190320
  Transmission Date: 20190417
  Serious: Yes (Other)
  Sender: FDA-Public Use
  Company Number: PT-009507513-1812PRT010487

PATIENT
  Age: 18 Year
  Sex: Female

DRUGS (1)
  1. IMPLANON [Suspect]
     Active Substance: ETONOGESTREL
     Indication: CONTRACEPTION
     Dosage: ONE IMPLANT
     Route: 059
     Dates: start: 20151207

REACTIONS (9)
  - Complication of device removal [Not Recovered/Not Resolved]
  - Device dislocation [Not Recovered/Not Resolved]
  - Atelectasis [Unknown]
  - Lymphoid tissue hyperplasia [Unknown]
  - Complication associated with device [Not Recovered/Not Resolved]
  - Device embolisation [Not Recovered/Not Resolved]
  - Chest X-ray abnormal [Unknown]
  - Pulmonary mass [Unknown]
  - Incorrect product administration duration [Unknown]

NARRATIVE: CASE EVENT DATE: 201811
